FAERS Safety Report 8270014-2 (Version None)
Quarter: 2012Q2

REPORT INFORMATION
  Report Type: 
  Country: None (occurrence: None)
  Receive Date: 20120410
  Receipt Date: 20120328
  Transmission Date: 20120825
  Serious: Yes (Other)
  Sender: FDA-Public Use
  Company Number: BR-SANOFI-AVENTIS-2012SA021786

PATIENT
  Age: 62 Year
  Sex: Female

DRUGS (1)
  1. LANTUS [Suspect]
     Route: 065

REACTIONS (3)
  - DEMENTIA ALZHEIMER'S TYPE [None]
  - PARKINSON'S DISEASE [None]
  - ADVERSE EVENT [None]
